FAERS Safety Report 6244491-2 (Version None)
Quarter: 2009Q2

REPORT INFORMATION
  Report Type: 
  Country: None (occurrence: None)
  Receive Date: 20090623
  Receipt Date: 20090623
  Transmission Date: 20091009
  Serious: Yes (Hospitalization)
  Sender: FDA-Public Use
  Company Number: None

PATIENT
  Sex: Male

DRUGS (9)
  1. GLEEVEC [Suspect]
     Indication: PROSTATE CANCER
     Dosage: 300 MG QD PO
     Route: 048
     Dates: start: 20090312, end: 20090428
  2. SORAFENIB [Suspect]
     Indication: PROSTATE CANCER
     Dosage: 400 MG QD PO
     Route: 048
     Dates: start: 20090312, end: 20090428
  3. LUPRON [Concomitant]
  4. IPRATROPIUM BROMIDE [Concomitant]
  5. OS-CAL [Concomitant]
  6. VIT E [Concomitant]
  7. MULTI-VITAMINS [Concomitant]
  8. ASPIRIN [Concomitant]
  9. VIT C [Concomitant]

REACTIONS (8)
  - CHEST PAIN [None]
  - LOSS OF CONSCIOUSNESS [None]
  - METASTASES TO BONE [None]
  - MITRAL VALVE INCOMPETENCE [None]
  - PULMONARY ARTERIAL HYPERTENSION [None]
  - PULMONARY VALVE INCOMPETENCE [None]
  - SYNCOPE [None]
  - TRICUSPID VALVE INCOMPETENCE [None]
